FAERS Safety Report 11611671 (Version 3)
Quarter: 2015Q4

REPORT INFORMATION
  Report Type: Spontaneous
  Country: FR (occurrence: FR)
  Receive Date: 20151008
  Receipt Date: 20151230
  Transmission Date: 20160304
  Serious: Yes (Life-Threatening, Other)
  Sender: FDA-Public Use
  Company Number: FR-009507513-1510FRA000987

PATIENT

DRUGS (1)
  1. TEMOZOLOMIDE. [Suspect]
     Active Substance: TEMOZOLOMIDE
     Indication: OCULAR LYMPHOMA
     Dosage: 150 MG/M2, 5 DAYS/MONTH
     Route: 048

REACTIONS (1)
  - Haematotoxicity [Unknown]
